FAERS Safety Report 24956151 (Version 1)
Quarter: 2025Q1

REPORT INFORMATION
  Report Type: Spontaneous
  Country: US (occurrence: US)
  Receive Date: 20250211
  Receipt Date: 20250211
  Transmission Date: 20250409
  Serious: No
  Sender: MYLAN
  Company Number: US-MYLANLABS-2025M1008610

PATIENT
  Age: 74 Year
  Sex: Female

DRUGS (3)
  1. LEVOTHYROXINE [Suspect]
     Active Substance: LEVOTHYROXINE
     Indication: Product used for unknown indication
     Dosage: 1 DOSAGE FORM, QD (ONCE DAILY)
     Route: 065
     Dates: start: 20241130, end: 20250125
  2. LIOTHYRONINE [Concomitant]
     Active Substance: LIOTHYRONINE
     Route: 065
     Dates: start: 2022
  3. TRELEGY ELLIPTA [Concomitant]
     Active Substance: FLUTICASONE FUROATE\UMECLIDINIUM BROMIDE\VILANTEROL TRIFENATATE
     Route: 065
     Dates: start: 202305

REACTIONS (10)
  - Alopecia [Unknown]
  - Weight increased [Unknown]
  - Dry skin [Unknown]
  - Onychoclasis [Unknown]
  - Brain fog [Unknown]
  - Sleep disorder [Unknown]
  - Temperature regulation disorder [Unknown]
  - Adverse reaction [Unknown]
  - Muscle spasms [Unknown]
  - Product packaging quantity issue [Unknown]

NARRATIVE: CASE EVENT DATE: 20241201
